FAERS Safety Report 4788685-1 (Version None)
Quarter: 2005Q4

REPORT INFORMATION
  Report Type: 
  Country: None (occurrence: None)
  Receive Date: 20051003
  Receipt Date: 20041230
  Transmission Date: 20060501
  Serious: Yes (Other)
  Sender: FDA-Public Use
  Company Number: 141030USA

PATIENT
  Age: 58 Year
  Sex: Male
  Weight: 94.3482 kg

DRUGS (9)
  1. SULFAMETHOXAZOLE + TRIMETHOPRIM [Suspect]
     Indication: EPIDIDYMITIS
     Dates: start: 20041208, end: 20041227
  2. SULFAMETHOXAZOLE + TRIMETHOPRIM [Suspect]
     Indication: PROSTATE INFECTION
     Dates: start: 20041208, end: 20041227
  3. COUMADIN [Concomitant]
  4. ATENOLOL [Concomitant]
  5. TENEX [Concomitant]
  6. LASIX [Concomitant]
  7. ALLOPURINOL [Concomitant]
  8. NEURONTIN [Concomitant]
  9. VITAMIN [Concomitant]

REACTIONS (5)
  - ERYTHEMA [None]
  - PAIN IN EXTREMITY [None]
  - SKIN DISORDER [None]
  - SKIN EXFOLIATION [None]
  - SKIN HAEMORRHAGE [None]
